FAERS Safety Report 5885990-2 (Version None)
Quarter: 2008Q3

REPORT INFORMATION
  Report Type: 
  Country: None (occurrence: None)
  Receive Date: 20080917
  Receipt Date: 20080912
  Transmission Date: 20090109
  Serious: Yes (Other)
  Sender: FDA-Public Use
  Company Number: GB-ROCHE-586148

PATIENT
  Sex: Female
  Weight: 84.8 kg

DRUGS (6)
  1. ORLISTAT [Suspect]
     Indication: OBESITY
     Route: 048
     Dates: start: 20080723, end: 20080820
  2. MAXALT [Concomitant]
     Indication: MIGRAINE
     Route: 048
  3. PROPRANOLOL [Concomitant]
     Indication: MIGRAINE
     Route: 048
  4. PROCHLORPERAZINE [Concomitant]
     Indication: MIGRAINE
     Route: 048
  5. CEPHALEXIN [Concomitant]
     Indication: PROPHYLAXIS URINARY TRACT INFECTION
     Route: 048
  6. LANSOPRAZOLE [Concomitant]
     Route: 048

REACTIONS (2)
  - MIGRAINE [None]
  - RENAL FAILURE CHRONIC [None]
